FAERS Safety Report 24595738 (Version 1)
Quarter: 2024Q4

REPORT INFORMATION
  Report Type: Spontaneous
  Country: US (occurrence: US)
  Receive Date: 20241109
  Receipt Date: 20241109
  Transmission Date: 20250115
  Serious: No
  Sender: ABBVIE
  Company Number: US-ABBVIE-5991078

PATIENT
  Age: 18 Year
  Sex: Female

DRUGS (1)
  1. RINVOQ [Suspect]
     Active Substance: UPADACITINIB
     Indication: Crohn^s disease
     Dosage: UNIT DOSE: 30;
     Route: 048
     Dates: start: 202403

REACTIONS (1)
  - Amenorrhoea [Recovered/Resolved]

NARRATIVE: CASE EVENT DATE: 20240301
